FAERS Safety Report 24927859 (Version 1)
Quarter: 2025Q1

REPORT INFORMATION
  Report Type: Spontaneous
  Country: FR (occurrence: FR)
  Receive Date: 20250205
  Receipt Date: 20250205
  Transmission Date: 20250409
  Serious: Yes (Disabling)
  Sender: CHEPLAPHARM
  Company Number: FR-CHEPLA-2025001449

PATIENT
  Age: 45 Year
  Sex: Male

DRUGS (2)
  1. OLANZAPINE [Suspect]
     Active Substance: OLANZAPINE
     Indication: Schizophrenia
     Dosage: DAILY DOSE: 30 MILLIGRAM
     Route: 048
     Dates: start: 2014
  2. OLANZAPINE [Suspect]
     Active Substance: OLANZAPINE
     Indication: Schizophrenia
     Dosage: DAILY DOSE: 20 MILLIGRAM
     Route: 048
     Dates: start: 20250204

REACTIONS (2)
  - Glaucoma [Unknown]
  - Blindness [Unknown]

NARRATIVE: CASE EVENT DATE: 20240901
